FAERS Safety Report 21015845 (Version 1)
Quarter: 2022Q2

REPORT INFORMATION
  Report Type: Spontaneous
  Country: US (occurrence: None)
  Receive Date: 20220627
  Receipt Date: 20220627
  Transmission Date: 20220720
  Serious: Yes (Hospitalization)
  Sender: FDA-Public Use
  Company Number: None

PATIENT
  Age: 67 Year
  Sex: Female

DRUGS (1)
  1. AMBRISENTAN [Suspect]
     Active Substance: AMBRISENTAN
     Indication: Pulmonary arterial hypertension
     Dosage: 10MG EVERY DAY PO
     Route: 048
     Dates: start: 20210304

REACTIONS (2)
  - Pericardial effusion [None]
  - Dyspnoea [None]

NARRATIVE: CASE EVENT DATE: 20220612
